FAERS Safety Report 7593746-8 (Version None)
Quarter: 2011Q3

REPORT INFORMATION
  Report Type: 
  Country: None (occurrence: None)
  Receive Date: 20110706
  Receipt Date: 20110624
  Transmission Date: 20111222
  Serious: Yes (Disabling)
  Sender: FDA-Public Use
  Company Number: PHHY2011US50284

PATIENT
  Sex: Female

DRUGS (5)
  1. VIDAZA [Concomitant]
     Dosage: 75 MG/M2, 1 - 5 MONTHLY
     Route: 042
  2. ARANESP [Concomitant]
     Dosage: 500 MG, WEEKLY
     Route: 058
  3. EXJADE [Suspect]
     Indication: IRON OVERLOAD
     Dosage: 750 MG, QD
     Route: 048
     Dates: start: 20110510, end: 20110517
  4. SYNTHROID [Concomitant]
     Dosage: 0.137 MG,
     Route: 048
     Dates: start: 19941111
  5. FOSAMAX [Concomitant]
     Dosage: 70 MG, WEEKLY
     Route: 048
     Dates: start: 20071111

REACTIONS (2)
  - CARDIAC DISORDER [None]
  - VISION BLURRED [None]
